FAERS Safety Report 9965228 (Version 1)
Quarter: 2014Q1

REPORT INFORMATION
  Report Type: Report from Study
  Country: US (occurrence: US)
  Receive Date: 20140305
  Receipt Date: 20140305
  Transmission Date: 20141002
  Serious: No
  Sender: FDA-Public Use
  Company Number: US-ABBVIE-13P-163-1128882-00

PATIENT
  Age: 44 Year
  Sex: Female

DRUGS (11)
  1. HUMIRA [Suspect]
     Indication: CROHN^S DISEASE
     Dates: start: 20130717, end: 20130717
  2. HUMIRA [Suspect]
     Dates: start: 20130731, end: 20130731
  3. HUMIRA [Suspect]
  4. ATENOLOL [Concomitant]
     Indication: HYPERTENSION
  5. ATIVAN [Concomitant]
     Indication: HYPOTHYROIDISM
  6. MATEMAZOL [Concomitant]
     Indication: HYPOTHYROIDISM
  7. PREDNISONE [Concomitant]
     Indication: PRODUCT USED FOR UNKNOWN INDICATION
     Dosage: 5 MG (1.5 TABLETSS) DAILY
  8. WARFARIN [Concomitant]
     Indication: PRODUCT USED FOR UNKNOWN INDICATION
     Dosage: MONDAY, WEDNESDAY, THURSDAY AND SATURDAY
  9. WARFARIN [Concomitant]
     Dosage: TUESDAY, FRIDAY, AND SUNDAY
  10. OMEPRAZOLE [Concomitant]
     Indication: GASTROOESOPHAGEAL REFLUX DISEASE
  11. PAIN MEDICATION [Concomitant]
     Indication: PRODUCT USED FOR UNKNOWN INDICATION

REACTIONS (9)
  - Device malfunction [Unknown]
  - Drug dose omission [Unknown]
  - Headache [Recovered/Resolved]
  - Feeling abnormal [Recovered/Resolved]
  - Feeling abnormal [Recovered/Resolved]
  - Headache [Unknown]
  - Asthenia [Unknown]
  - Fatigue [Unknown]
  - Sluggishness [Unknown]
